FAERS Safety Report 6411184-8 (Version None)
Quarter: 2009Q4

REPORT INFORMATION
  Report Type: 
  Country: None (occurrence: None)
  Receive Date: 20091019
  Receipt Date: 20090814
  Transmission Date: 20100525
  Serious: Yes (Other)
  Sender: FDA-Public Use
  Company Number: 2009SP020754

PATIENT
  Age: 85 Year
  Sex: Female
  Weight: 50 kg

DRUGS (12)
  1. MIRTAZAPINE [Suspect]
     Indication: DEPRESSION
     Dosage: 15 MG; BID; PO, 1 DF; QD; PO
     Route: 048
     Dates: start: 20090730, end: 20090813
  2. MIRTAZAPINE [Suspect]
     Indication: DEPRESSION
     Dosage: 15 MG; BID; PO, 1 DF; QD; PO
     Route: 048
     Dates: start: 20090820
  3. RISPERDAL [Suspect]
     Indication: DRUG USE FOR UNKNOWN INDICATION
     Dosage: ; PO
     Route: 048
     Dates: start: 20090801
  4. PREVISCAN (FLUINDIONE) [Suspect]
     Indication: PULMONARY EMBOLISM
     Dosage: 1 DF; QD; PO
     Route: 048
  5. SECTRAL [Concomitant]
  6. KEPPRA [Concomitant]
  7. EXELON [Concomitant]
  8. ALENDRONATE SODIUM [Concomitant]
  9. LASILIX [Concomitant]
  10. TRANSIPEG [Concomitant]
  11. RAMIPRIL [Concomitant]
  12. SPECIAFOLDINE [Concomitant]

REACTIONS (4)
  - DRUG ADMINISTRATION ERROR [None]
  - DRUG INTERACTION [None]
  - EPISTAXIS [None]
  - INTERNATIONAL NORMALISED RATIO INCREASED [None]
